FAERS Safety Report 9154215 (Version 1)
Quarter: 2013Q1

REPORT INFORMATION
  Report Type: Spontaneous
  Country: US (occurrence: None)
  Receive Date: 20130306
  Receipt Date: 20130306
  Transmission Date: 20140127
  Serious: Yes (Hospitalization)
  Sender: FDA-Public Use
  Company Number: None

PATIENT
  Age: 16 Year
  Sex: Male
  Weight: 190.51 kg

DRUGS (1)
  1. CELEXA [Suspect]
     Indication: DEPRESSION
     Dosage: 20MG 1 QHS PO
     Route: 048
     Dates: start: 20130225, end: 20130225

REACTIONS (3)
  - Panic attack [None]
  - Dyspnoea [None]
  - Chest pain [None]
